FAERS Safety Report 15327633 (Version 1)
Quarter: 2018Q3

REPORT INFORMATION
  Report Type: Spontaneous
  Country: CA (occurrence: CA)
  Receive Date: 20180828
  Receipt Date: 20180828
  Transmission Date: 20181010
  Serious: Yes (Death, Other)
  Sender: FDA-Public Use
  Company Number: CA-SUNOVION-2018SUN003147

PATIENT
  Age: 54 Year
  Sex: Male
  Weight: 99.77 kg

DRUGS (4)
  1. LATUDA [Suspect]
     Active Substance: LURASIDONE HYDROCHLORIDE
     Indication: PSYCHOTIC DISORDER
     Dosage: 80 MG, UNK
     Route: 048
  2. OLANZAPINE. [Suspect]
     Active Substance: OLANZAPINE
     Dosage: 20 MG, HS
  3. OLANZAPINE. [Suspect]
     Active Substance: OLANZAPINE
     Indication: PSYCHOTIC DISORDER
     Dosage: 25 MG, QD IN THE MORNING
  4. OLANZAPINE. [Concomitant]
     Active Substance: OLANZAPINE
     Dosage: 25 MG, UNK

REACTIONS (3)
  - Sudden death [Fatal]
  - Temperature intolerance [Fatal]
  - Off label use [Unknown]

NARRATIVE: CASE EVENT DATE: 201807
